FAERS Safety Report 10082535 (Version 1)
Quarter: 2014Q2

REPORT INFORMATION
  Report Type: Spontaneous
  Country: US (occurrence: US)
  Receive Date: 20140416
  Receipt Date: 20140416
  Transmission Date: 20141212
  Serious: No
  Sender: FDA-Public Use
  Company Number: US-BIOGENIDEC-2014BI035201

PATIENT
  Age: 68 Year
  Sex: Female

DRUGS (4)
  1. AVONEX [Suspect]
     Indication: MULTIPLE SCLEROSIS
     Route: 030
     Dates: start: 20110324
  2. CLARITIN [Concomitant]
  3. GUAIFENESIN [Concomitant]
  4. OFLOXACIN [Concomitant]

REACTIONS (2)
  - Pain in extremity [Unknown]
  - Diarrhoea [Unknown]
